FAERS Safety Report 5379358-5 (Version None)
Quarter: 2007Q3

REPORT INFORMATION
  Report Type: 
  Country: None (occurrence: None)
  Receive Date: 20070705
  Receipt Date: 20070627
  Transmission Date: 20080115
  Serious: Yes (Other)
  Sender: FDA-Public Use
  Company Number: JP-ABBOTT-07P-087-0373083-00

PATIENT
  Age: 32 Year
  Sex: Male

DRUGS (6)
  1. NORVIR [Suspect]
     Indication: HIV INFECTION
     Route: 048
     Dates: start: 20060401, end: 20060713
  2. LAMIVUDINE [Concomitant]
     Indication: HIV INFECTION
     Route: 048
     Dates: start: 20060401, end: 20060713
  3. ATAZANAVIR SULFATE [Concomitant]
     Indication: HIV INFECTION
     Route: 048
     Dates: start: 20060401, end: 20060713
  4. TENOFOVIR [Concomitant]
     Indication: HIV INFECTION
     Route: 048
     Dates: start: 20060401, end: 20060713
  5. FOSAMPRENAVIR [Concomitant]
     Indication: HIV INFECTION
     Route: 048
     Dates: start: 20060829
  6. EMTRICITABINE W/TENOFOVIR [Concomitant]
     Indication: HIV INFECTION
     Route: 048
     Dates: start: 20060829

REACTIONS (3)
  - DIZZINESS [None]
  - ENCEPHALITIS BRAIN STEM [None]
  - NAUSEA [None]
